FAERS Safety Report 6286998-8 (Version None)
Quarter: 2009Q3

REPORT INFORMATION
  Report Type: 
  Country: None (occurrence: None)
  Receive Date: 20090727
  Receipt Date: 20090727
  Transmission Date: 20100115
  Serious: Yes (Other)
  Sender: FDA-Public Use
  Company Number: None

PATIENT
  Age: 62 Year
  Sex: Female
  Weight: 54.4316 kg

DRUGS (1)
  1. VESICARE [Suspect]
     Indication: HYPERTONIC BLADDER
     Dosage: 10 MG DAILY BY MOUTH
     Route: 048
     Dates: start: 20070925, end: 20090531

REACTIONS (3)
  - APTYALISM [None]
  - DENTAL CARIES [None]
  - DRY MOUTH [None]
